FAERS Safety Report 16446893 (Version 1)
Quarter: 2019Q2

REPORT INFORMATION
  Report Type: Spontaneous
  Country: CN (occurrence: CN)
  Receive Date: 20190618
  Receipt Date: 20190618
  Transmission Date: 20190711
  Serious: Yes (Hospitalization, Other)
  Sender: FDA-Public Use
  Company Number: CN-SA-2019SA164449

PATIENT
  Age: 57 Year
  Sex: Male

DRUGS (3)
  1. ACARBOSE. [Suspect]
     Active Substance: ACARBOSE
     Dosage: UNK UNK, UNK
  2. METFORMIN [Concomitant]
     Active Substance: METFORMIN HYDROCHLORIDE
     Dosage: UNK UNK, UNK
  3. GLIMEPIRIDE. [Suspect]
     Active Substance: GLIMEPIRIDE
     Dosage: UNK UNK, UNK

REACTIONS (1)
  - Drug-induced liver injury [Recovering/Resolving]
